FAERS Safety Report 8558827-0 (Version None)
Quarter: 2012Q3

REPORT INFORMATION
  Report Type: 
  Country: None (occurrence: None)
  Receive Date: 20120801
  Receipt Date: 20120727
  Transmission Date: 20120928
  Serious: Yes (Life-Threatening, Other)
  Sender: FDA-Public Use
  Company Number: JP-ABBOTT-12P-087-0936127-00

PATIENT
  Age: 83 Year
  Sex: Male

DRUGS (7)
  1. WARFARIN POTASSIUM [Concomitant]
     Indication: ATRIAL FIBRILLATION
     Route: 048
  2. OLMESARTAN MEDOXOMIL [Concomitant]
     Indication: HYPERTENSION
  3. ALLOPURINOL [Concomitant]
     Indication: HYPERURICAEMIA
     Route: 048
     Dates: end: 20120505
  4. TEPRENONE [Concomitant]
     Indication: GASTRITIS
     Route: 048
     Dates: start: 20120502, end: 20120505
  5. LEUPROLIDE ACETATE [Suspect]
     Indication: PROSTATE CANCER
     Route: 058
     Dates: start: 20120305, end: 20120305
  6. BICALUTAMIDE [Suspect]
     Indication: PROSTATE CANCER
     Route: 048
     Dates: start: 20120305, end: 20120305
  7. SIMVASTATIN [Concomitant]
     Indication: HYPERLIPIDAEMIA
     Route: 048
     Dates: end: 20120505

REACTIONS (1)
  - INTERSTITIAL LUNG DISEASE [None]
